FAERS Safety Report 4846352-X (Version None)
Quarter: 2005Q4

REPORT INFORMATION
  Report Type: 
  Country: None (occurrence: None)
  Receive Date: 20051115
  Receipt Date: 20050930
  Transmission Date: 20060501
  Serious: Yes (Other)
  Sender: FDA-Public Use
  Company Number: 419928

PATIENT
  Age: 44 Year
  Sex: Female

DRUGS (5)
  1. PEGASYS [Suspect]
     Indication: HEPATITIS C VIRUS
     Dosage: 180 MCG 1 PER WEEK OTHER
     Route: 050
     Dates: start: 20050522
  2. COPEGUS [Suspect]
     Indication: HEPATITIS C VIRUS
     Dosage: 1200 MG DAILY ORAL
     Route: 048
     Dates: start: 20050522
  3. ENBREL [Concomitant]
  4. ADVAIR DISKUS 100/50 [Concomitant]
  5. ALBUTEROL [Concomitant]

REACTIONS (1)
  - PNEUMONIA [None]
